FAERS Safety Report 7645207-5 (Version None)
Quarter: 2011Q3

REPORT INFORMATION
  Report Type: 
  Country: None (occurrence: None)
  Receive Date: 20110729
  Receipt Date: 20110721
  Transmission Date: 20111222
  Serious: Yes (Other)
  Sender: FDA-Public Use
  Company Number: ES-BRISTOL-MYERS SQUIBB COMPANY-15915184

PATIENT
  Sex: Male

DRUGS (2)
  1. ONGLYZA [Suspect]
  2. INSULIN [Concomitant]
     Dosage: 20 IU IN THE MORNINGS AND 12 IU AT NIGHT

REACTIONS (3)
  - OCULAR ICTERUS [None]
  - HEPATITIS TOXIC [None]
  - CHOLESTASIS [None]
